FAERS Safety Report 5530686-X (Version None)
Quarter: 2007Q4

REPORT INFORMATION
  Report Type: 
  Country: None (occurrence: None)
  Receive Date: 20071128
  Receipt Date: 20071128
  Transmission Date: 20080405
  Serious: Yes (Hospitalization)
  Sender: FDA-Public Use
  Company Number: None

PATIENT
  Sex: Female
  Weight: 74.6 kg

DRUGS (10)
  1. VINFLUNINE 320MG/M2 BMS [Suspect]
     Indication: LUNG NEOPLASM MALIGNANT
     Dosage: 595 MG Q3WKS IV
     Route: 042
     Dates: start: 20071105
  2. VINFLUNINE 320MG/M2 BMS [Suspect]
     Indication: METASTASES TO BONE
     Dosage: 595 MG Q3WKS IV
     Route: 042
     Dates: start: 20071105
  3. VINFLUNINE [Suspect]
  4. LEVOXYL [Concomitant]
  5. COUMADIN [Concomitant]
  6. VICODIN [Concomitant]
  7. VITAMIN [Concomitant]
  8. CALCIUM [Concomitant]
  9. ASPIRIN [Concomitant]
  10. ALEVE [Concomitant]

REACTIONS (7)
  - BONE MARROW FAILURE [None]
  - BONE PAIN [None]
  - DEHYDRATION [None]
  - DIARRHOEA [None]
  - HEADACHE [None]
  - ILEUS PARALYTIC [None]
  - PAIN [None]
